FAERS Safety Report 7787662-6 (Version None)
Quarter: 2011Q3

REPORT INFORMATION
  Report Type: 
  Country: None (occurrence: None)
  Receive Date: 20110929
  Receipt Date: 20110926
  Transmission Date: 20111222
  Serious: Yes (Other)
  Sender: FDA-Public Use
  Company Number: FR-BAYER-2011-090954

PATIENT
  Age: 77 Year
  Sex: Male

DRUGS (3)
  1. CLINDAMYCIN HCL [Suspect]
     Dosage: 600 MG, TID
     Route: 048
     Dates: start: 20110830
  2. CIPROFLOXACIN [Suspect]
     Dosage: 500 MG, BID
     Route: 048
     Dates: start: 20110830
  3. PREVISCAN [Suspect]
     Dosage: UNK
     Route: 048
     Dates: end: 20110904

REACTIONS (2)
  - RENAL FAILURE [None]
  - INTERNATIONAL NORMALISED RATIO INCREASED [None]
